FAERS Safety Report 17046579 (Version 1)
Quarter: 2019Q4

REPORT INFORMATION
  Report Type: Spontaneous
  Country: CA (occurrence: CA)
  Receive Date: 20191119
  Receipt Date: 20191119
  Transmission Date: 20200122
  Serious: Yes (Life-Threatening, Hospitalization, Other)
  Sender: FDA-Public Use
  Company Number: CA-AUROBINDO-AUR-APL-2019-072858

PATIENT
  Age: 70 Year
  Sex: Female

DRUGS (11)
  1. ANACIN NOS [Concomitant]
     Active Substance: ACETAMINOPHEN OR ACETAMINOPHEN\ASPIRIN\CAFFEINE OR ASPIRIN\CAFFEINE
     Indication: HEADACHE
     Dosage: UNK, EVERY WEEK
     Route: 065
  2. BACLOFEN. [Concomitant]
     Active Substance: BACLOFEN
     Indication: PRODUCT USED FOR UNKNOWN INDICATION
     Dosage: 10 MILLIGRAM, 3 TIMES A DAY
     Route: 065
  3. LORAZEPAM. [Concomitant]
     Active Substance: LORAZEPAM
     Indication: SLEEP DISORDER
     Dosage: 2 MILLIGRAM, 3 TIMES A DAY
     Route: 065
  4. LORAZEPAM. [Concomitant]
     Active Substance: LORAZEPAM
     Indication: ANXIETY
  5. T3 [Concomitant]
     Active Substance: LIOTHYRONINE SODIUM
     Indication: PAIN IN EXTREMITY
     Dosage: UNK, 3 TIMES A DAY
     Route: 065
  6. QUETIAPINE XR [Suspect]
     Active Substance: QUETIAPINE
     Indication: SLEEP DISORDER
     Dosage: 15 MILLIGRAM, TWO TIMES A DAY
     Route: 048
  7. SPIRIVA [Concomitant]
     Active Substance: TIOTROPIUM BROMIDE MONOHYDRATE
     Indication: PRODUCT USED FOR UNKNOWN INDICATION
     Dosage: 18 MICROGRAM, ONCE A DAY
     Route: 065
  8. VENTOLIN [Concomitant]
     Active Substance: ALBUTEROL SULFATE
     Indication: PRODUCT USED FOR UNKNOWN INDICATION
     Dosage: UNK, FOUR TIMES/DAY
     Route: 065
  9. ESCITALOPRAM [Suspect]
     Active Substance: ESCITALOPRAM OXALATE
     Indication: PRODUCT USED FOR UNKNOWN INDICATION
     Dosage: 20 MILLIGRAM, ONCE A DAY
     Route: 065
  10. TRIAZIDE [Concomitant]
     Indication: PRODUCT USED FOR UNKNOWN INDICATION
     Dosage: UNK, ONCE A DAY
     Route: 065
  11. QUETIAPINE XR [Suspect]
     Active Substance: QUETIAPINE
     Indication: AFFECTIVE DISORDER

REACTIONS (10)
  - Delirium [Recovered/Resolved]
  - Drug level increased [Recovered/Resolved]
  - Fall [Recovered/Resolved]
  - Myocardial infarction [Recovered/Resolved]
  - Serotonin syndrome [Recovered/Resolved]
  - Blood pressure measurement [Recovered/Resolved]
  - Rhabdomyolysis [Recovered/Resolved]
  - Diabetes mellitus [Recovered/Resolved]
  - Neuroleptic malignant syndrome [Recovered/Resolved]
  - Sedation [Recovered/Resolved]
